FAERS Safety Report 14115804 (Version 1)
Quarter: 2017Q4

REPORT INFORMATION
  Report Type: Spontaneous
  Country: US (occurrence: US)
  Receive Date: 20171023
  Receipt Date: 20171023
  Transmission Date: 20180321
  Serious: No
  Sender: FDA-Public Use
  Company Number: US-SA-2017SA053409

PATIENT
  Sex: Female

DRUGS (1)
  1. AVALIDE [Suspect]
     Active Substance: HYDROCHLOROTHIAZIDE\IRBESARTAN
     Route: 065

REACTIONS (2)
  - Blood pressure increased [Unknown]
  - Drug ineffective [Unknown]
